FAERS Safety Report 15676745 (Version 1)
Quarter: 2018Q4

REPORT INFORMATION
  Report Type: Spontaneous
  Country: US (occurrence: US)
  Receive Date: 20181130
  Receipt Date: 20181130
  Transmission Date: 20190205
  Serious: No
  Sender: FDA-Public Use
  Company Number: US-009507513-1811USA002678

PATIENT
  Age: 3 Year
  Sex: Male

DRUGS (2)
  1. ETOPOSIDE. [Concomitant]
     Active Substance: ETOPOSIDE
     Dosage: 50 MG/M2 DAILY, 14 DAYS PER MONTH
  2. TEMODAR [Suspect]
     Active Substance: TEMOZOLOMIDE
     Indication: CENTRAL NERVOUS SYSTEM MELANOMA
     Dosage: 150 MG/M2 FOR 5 DAYS EACH MONTH

REACTIONS (1)
  - Off label use [Unknown]
